FAERS Safety Report 16038494 (Version 1)
Quarter: 2019Q1

REPORT INFORMATION
  Report Type: Spontaneous
  Country: US (occurrence: US)
  Receive Date: 20190305
  Receipt Date: 20190305
  Transmission Date: 20190418
  Serious: No
  Sender: FDA-Public Use
  Company Number: US-GILEAD-2019-0394746

PATIENT
  Sex: Male
  Weight: 90.72 kg

DRUGS (4)
  1. RIBAVIRIN. [Suspect]
     Active Substance: RIBAVIRIN
     Indication: HEPATITIS C
     Dosage: 200 MG, BID
     Route: 048
     Dates: start: 201811
  2. RAPAMUNE [Concomitant]
     Active Substance: SIROLIMUS
  3. HARVONI [Suspect]
     Active Substance: LEDIPASVIR\SOFOSBUVIR
     Indication: HEPATITIS C
     Dosage: UNK
     Route: 065
     Dates: start: 201811
  4. CYCLOSPORIN [Concomitant]
     Active Substance: CYCLOSPORINE

REACTIONS (2)
  - Nervousness [Unknown]
  - Dizziness [Unknown]
